FAERS Safety Report 7489376-9 (Version None)
Quarter: 2011Q2

REPORT INFORMATION
  Report Type: 
  Country: None (occurrence: None)
  Receive Date: 20110518
  Receipt Date: 20110510
  Transmission Date: 20111010
  Serious: Yes (Other)
  Sender: FDA-Public Use
  Company Number: CH-GILEAD-2011-0039367

PATIENT
  Age: 22 Year
  Sex: Female

DRUGS (2)
  1. MAGNESIUM SULFATE [Concomitant]
     Indication: PRE-ECLAMPSIA
  2. VIREAD [Suspect]
     Indication: HEPATITIS B
     Dates: start: 20100901

REACTIONS (4)
  - DRUG EXPOSURE DURING PREGNANCY [None]
  - CAESAREAN SECTION [None]
  - MATERNAL DRUGS AFFECTING FOETUS [None]
  - PREMATURE BABY [None]
